FAERS Safety Report 8106993-3 (Version None)
Quarter: 2012Q1

REPORT INFORMATION
  Report Type: 
  Country: None (occurrence: None)
  Receive Date: 20120202
  Receipt Date: 20120202
  Transmission Date: 20120608
  Serious: Yes (Other)
  Sender: FDA-Public Use
  Company Number: None

PATIENT
  Age: 65 Year
  Sex: Female
  Weight: 104.32 kg

DRUGS (2)
  1. CYMBALTA [Suspect]
     Indication: FIBROMYALGIA
     Dosage: ONE TAB
     Route: 048
     Dates: start: 20090101, end: 20120126
  2. ATIVAN [Concomitant]
     Route: 048

REACTIONS (12)
  - PARAESTHESIA [None]
  - FEAR [None]
  - ABNORMAL DREAMS [None]
  - PALPITATIONS [None]
  - CRYING [None]
  - INSOMNIA [None]
  - WITHDRAWAL SYNDROME [None]
  - DIZZINESS [None]
  - ANGER [None]
  - IMPATIENCE [None]
  - EMOTIONAL DISORDER [None]
  - FEELING ABNORMAL [None]
